FAERS Safety Report 4876061-2 (Version None)
Quarter: 2005Q4

REPORT INFORMATION
  Report Type: 
  Country: None (occurrence: None)
  Receive Date: 20051206
  Receipt Date: 20051024
  Transmission Date: 20060501
  Serious: No
  Sender: FDA-Public Use
  Company Number: USA0510111707

PATIENT
  Age: 45 Year
  Sex: Male

DRUGS (4)
  1. CYMBALTA [Suspect]
     Indication: FACIAL NEURALGIA
     Dosage: 60 MG AT BEDTIME
     Dates: start: 20051020
  2. VIRAMUNE [Concomitant]
  3. TRUVADA [Concomitant]
  4. WELLBUTRIN [Concomitant]

REACTIONS (4)
  - HYPERHIDROSIS [None]
  - INSOMNIA [None]
  - NERVOUSNESS [None]
  - STOMACH DISCOMFORT [None]
